FAERS Safety Report 23933255 (Version 1)
Quarter: 2024Q2

REPORT INFORMATION
  Report Type: Spontaneous
  Country: US (occurrence: US)
  Receive Date: 20240603
  Receipt Date: 20240603
  Transmission Date: 20240716
  Serious: Yes (Other)
  Sender: FDA-Public Use
  Company Number: US-PFIZER INC-202400180331

PATIENT
  Age: 54 Year
  Sex: Female

DRUGS (1)
  1. TIVDAK [Suspect]
     Active Substance: TISOTUMAB VEDOTIN-TFTV
     Indication: Cervix carcinoma
     Dosage: 2 MG/KG, EVERY 3 WEEKS

REACTIONS (3)
  - Ulcerative keratitis [Unknown]
  - Eye inflammation [Recovered/Resolved]
  - Erythema [Recovered/Resolved]
